FAERS Safety Report 17113304 (Version 5)
Quarter: 2020Q4

REPORT INFORMATION
  Report Type: Report from Study
  Country: BR (occurrence: BR)
  Receive Date: 20191204
  Receipt Date: 20201201
  Transmission Date: 20210113
  Serious: Yes (Other)
  Sender: FDA-Public Use
  Company Number: BR-BIOGEN-2019BI00814265

PATIENT
  Age: 57 Year
  Sex: Female

DRUGS (9)
  1. INSULIN [Concomitant]
     Active Substance: INSULIN NOS
     Indication: DIABETES MELLITUS
     Route: 065
  2. HYDROCHLOROTHIAZIDE. [Concomitant]
     Active Substance: HYDROCHLOROTHIAZIDE
     Indication: PRODUCT USED FOR UNKNOWN INDICATION
     Route: 065
  3. RIVOTRIL [Concomitant]
     Active Substance: CLONAZEPAM
     Indication: SEDATIVE THERAPY
     Route: 065
  4. TYSABRI [Suspect]
     Active Substance: NATALIZUMAB
     Indication: MULTIPLE SCLEROSIS
     Route: 042
     Dates: start: 20191112
  5. TYSABRI [Suspect]
     Active Substance: NATALIZUMAB
     Route: 042
  6. AMIITRIPTYLINE [Concomitant]
     Indication: PRODUCT USED FOR UNKNOWN INDICATION
     Route: 065
  7. ACETYLYLSALICYLIC ACID [Concomitant]
     Indication: CEREBROVASCULAR ACCIDENT
     Route: 065
  8. DESVENLAFAXINE SUCCINATE MONOHYDRATE [Concomitant]
     Active Substance: DESVENLAFAXINE SUCCINATE
     Indication: SEDATIVE THERAPY
     Route: 065
  9. PROPRANOLOL [Concomitant]
     Active Substance: PROPRANOLOL HYDROCHLORIDE
     Indication: HYPERTENSION
     Route: 065

REACTIONS (33)
  - Depression [Unknown]
  - Back pain [Not Recovered/Not Resolved]
  - Hand fracture [Unknown]
  - Gastrooesophageal reflux disease [Recovered/Resolved]
  - Multiple sclerosis relapse [Recovered/Resolved]
  - Pharyngeal disorder [Recovered/Resolved]
  - Nail discolouration [Recovered/Resolved]
  - Prescribed underdose [Not Recovered/Not Resolved]
  - Fall [Recovered/Resolved]
  - Gait disturbance [Not Recovered/Not Resolved]
  - Peripheral swelling [Not Recovered/Not Resolved]
  - Pain in extremity [Not Recovered/Not Resolved]
  - Limb injury [Unknown]
  - Foot fracture [Recovered/Resolved]
  - Spinal cord infection [Not Recovered/Not Resolved]
  - Multiple sclerosis [Not Recovered/Not Resolved]
  - Crying [Unknown]
  - Nephrolithiasis [Not Recovered/Not Resolved]
  - Vitamin D decreased [Unknown]
  - Myelitis [Not Recovered/Not Resolved]
  - Blood cholesterol increased [Recovered/Resolved]
  - Gastritis [Recovered/Resolved]
  - Diabetes mellitus [Not Recovered/Not Resolved]
  - Amnesia [Not Recovered/Not Resolved]
  - Visual impairment [Not Recovered/Not Resolved]
  - Oesophagitis [Recovered/Resolved]
  - Central nervous system lesion [Unknown]
  - Atrophy [Recovered/Resolved]
  - Speech disorder [Recovered/Resolved]
  - Hepatic steatosis [Unknown]
  - Skin discolouration [Not Recovered/Not Resolved]
  - Impatience [Not Recovered/Not Resolved]
  - Pain in extremity [Not Recovered/Not Resolved]

NARRATIVE: CASE EVENT DATE: 2019
